FAERS Safety Report 15897026 (Version 7)
Quarter: 2020Q3

REPORT INFORMATION
  Report Type: Report from Study
  Country: HR (occurrence: HR)
  Receive Date: 20190131
  Receipt Date: 20200817
  Transmission Date: 20201102
  Serious: Yes (Life-Threatening, Hospitalization)
  Sender: FDA-Public Use
  Company Number: HR-EXELIXIS-XL18419018494

PATIENT
  Age: 64 Year
  Sex: Male
  Weight: 72 kg

DRUGS (8)
  1. ROCALTROL [Concomitant]
     Active Substance: CALCITRIOL
  2. EUTHYROX [Concomitant]
     Active Substance: LEVOTHYROXINE SODIUM
  3. BLINDED XL184 [Suspect]
     Active Substance: CABOZANTINIB
     Dosage: 140 OR 60 MG, QD
     Route: 048
     Dates: start: 20181123, end: 20181210
  4. BLINDED XL184 [Suspect]
     Active Substance: CABOZANTINIB
     Dosage: 140 OR 60 MG, QD
     Route: 048
     Dates: start: 20181123, end: 20181210
  5. FLIXONASE [Concomitant]
     Active Substance: FLUTICASONE PROPIONATE
  6. GELCLAIR [Concomitant]
  7. BLINDED XL184 [Suspect]
     Active Substance: CABOZANTINIB
     Dosage: 100 OR 40 MG QD
     Route: 048
     Dates: start: 20190103, end: 20190112
  8. BLINDED XL184 [Suspect]
     Active Substance: CABOZANTINIB
     Dosage: 100 OR 40 MG QD
     Route: 048
     Dates: start: 20190103, end: 20190112

REACTIONS (2)
  - Pneumonia [Not Recovered/Not Resolved]
  - Vocal cord paralysis [Recovered/Resolved with Sequelae]

NARRATIVE: CASE EVENT DATE: 20190125
